FAERS Safety Report 9580444 (Version 1)
Quarter: 2013Q4

REPORT INFORMATION
  Report Type: Spontaneous
  Country: US (occurrence: None)
  Receive Date: 20131001
  Receipt Date: 20131001
  Transmission Date: 20140711
  Serious: Yes (Hospitalization)
  Sender: FDA-Public Use
  Company Number: None

PATIENT
  Age: 64 Year
  Sex: Male
  Weight: 83.1 kg

DRUGS (2)
  1. ACETAMINOPHEN\HYDROCODONE [Suspect]
     Indication: PAIN
     Route: 048
     Dates: start: 20121220, end: 20130911
  2. OXYCODONE [Suspect]
     Route: 048
     Dates: start: 20130128

REACTIONS (4)
  - Oesophageal motility disorder [None]
  - Chest discomfort [None]
  - Oesophageal spasm [None]
  - Oesophagitis [None]
